FAERS Safety Report 9796422 (Version 1)
Quarter: 2014Q1

REPORT INFORMATION
  Report Type: Spontaneous
  Country: FR (occurrence: FR)
  Receive Date: 20140103
  Receipt Date: 20140103
  Transmission Date: 20141002
  Serious: Yes (Hospitalization)
  Sender: FDA-Public Use
  Company Number: FR-US-EMD SERONO, INC.-7260044

PATIENT
  Age: 28 Year
  Sex: Female

DRUGS (4)
  1. GONAL-F [Suspect]
     Indication: IN VITRO FERTILISATION
     Route: 058
     Dates: start: 20121228, end: 20130102
  2. GONAL-F [Suspect]
     Route: 058
     Dates: start: 20130103, end: 20130104
  3. CETROTIDE (CETRORELIX ACETATE FOR INJECTION) [Suspect]
     Indication: IN VITRO FERTILISATION
     Route: 058
     Dates: start: 20130102, end: 20130105
  4. CHORIONIC GONADOTROPIN [Suspect]
     Indication: IN VITRO FERTILISATION
     Route: 030
     Dates: start: 20130106

REACTIONS (2)
  - Pleural effusion [Recovered/Resolved]
  - Ovarian hyperstimulation syndrome [Recovered/Resolved]
